FAERS Safety Report 8100334-3 (Version None)
Quarter: 2012Q1

REPORT INFORMATION
  Report Type: 
  Country: None (occurrence: None)
  Receive Date: 20120129
  Receipt Date: 20111123
  Transmission Date: 20120608
  Serious: No
  Sender: FDA-Public Use
  Company Number: US-ABBOTT-11P-163-0877757-00

PATIENT
  Age: 61 Year
  Sex: Female

DRUGS (7)
  1. TRAZODONE HCL [Concomitant]
     Indication: INSOMNIA
     Dosage: AT BEDTIME
  2. SAVELLA [Concomitant]
     Indication: FIBROMYALGIA
     Dosage: DIAGNOSED YEARS AGO
  3. METHOTREXATE [Concomitant]
     Indication: PRODUCT USED FOR UNKNOWN INDICATION
  4. DULOXETIME [Concomitant]
     Indication: DEPRESSION
     Dosage: DIAGNOSED YEARS AGO
  5. HUMIRA [Suspect]
  6. CHOLESTEROL PILL [Concomitant]
     Indication: PRODUCT USED FOR UNKNOWN INDICATION
  7. HUMIRA [Suspect]
     Indication: RHEUMATOID ARTHRITIS
     Dates: start: 20110801

REACTIONS (3)
  - INJECTION SITE PAIN [None]
  - DRUG DOSE OMISSION [None]
  - PAIN IN EXTREMITY [None]
